FAERS Safety Report 7517124-2 (Version None)
Quarter: 2011Q2

REPORT INFORMATION
  Report Type: 
  Country: None (occurrence: None)
  Receive Date: 20110601
  Receipt Date: 20110525
  Transmission Date: 20111010
  Serious: Yes (Hospitalization, Congenital Anomaly, Other)
  Sender: FDA-Public Use
  Company Number: DE-TEVA-283721GER

PATIENT
  Age: 0 Year
  Sex: Male
  Weight: 1.995 kg

DRUGS (6)
  1. HUMIRA [Concomitant]
     Route: 064
  2. ACETAMINOPHEN [Concomitant]
     Dosage: 3000 [MG/D ]/ 1500MG/D UP TO 3000MG/D
     Route: 064
  3. VOLTAREN [Suspect]
     Dosage: 280 MILLIGRAM;
     Route: 064
  4. FOLIC ACID [Concomitant]
     Route: 064
     Dates: start: 20081115, end: 20090815
  5. PREDNISOLONE [Suspect]
     Dosage: 30 [MG/D ]/ GW 0-14: 5MG/D, GW: 14-16: 10MG/D, GW 16-20: 15MG/D, GW 20-22: 20MG/D, GW 27-35 15MG/D
     Route: 064
  6. IBUPROFEN [Suspect]
     Dosage: 600 MILLIGRAM;
     Route: 064

REACTIONS (4)
  - SMALL FOR DATES BABY [None]
  - CRYPTORCHISM [None]
  - PREMATURE BABY [None]
  - HYPERBILIRUBINAEMIA NEONATAL [None]
